FAERS Safety Report 7761598-9 (Version None)
Quarter: 2011Q3

REPORT INFORMATION
  Report Type: 
  Country: None (occurrence: None)
  Receive Date: 20110920
  Receipt Date: 20110914
  Transmission Date: 20111222
  Serious: Yes (Hospitalization)
  Sender: FDA-Public Use
  Company Number: US-B.I. PHARMACEUTICALS,INC./RIDGEFIELD-2011-BP-22194BP

PATIENT
  Sex: Female

DRUGS (12)
  1. ALBUTEROL [Concomitant]
  2. PREGABALIN [Concomitant]
  3. VENTOLIN HFA [Concomitant]
  4. FOLIC ACID [Concomitant]
  5. PERCOCET [Concomitant]
  6. AMITRIPTYLINE HCL [Concomitant]
  7. VITAMIN D [Concomitant]
  8. ADVAIR DISKUS 100/50 [Suspect]
     Indication: CHRONIC OBSTRUCTIVE PULMONARY DISEASE
     Dosage: 2 MG
     Route: 055
     Dates: start: 20110101, end: 20110601
  9. TRAMADOL HCL [Concomitant]
  10. CALCIUM SALT [Concomitant]
  11. SPIRIVA [Suspect]
     Indication: CHRONIC OBSTRUCTIVE PULMONARY DISEASE
  12. OMEPRAZOLE [Concomitant]

REACTIONS (5)
  - MICTURITION DISORDER [None]
  - CHEST DISCOMFORT [None]
  - DRUG INTOLERANCE [None]
  - CHEST PAIN [None]
  - PNEUMONIA [None]
